FAERS Safety Report 8649810 (Version 3)
Quarter: 2013Q1

REPORT INFORMATION
  Report Type: Spontaneous
  Country: FR (occurrence: FR)
  Receive Date: 20120705
  Receipt Date: 20130115
  Transmission Date: 20140127
  Serious: Yes (Hospitalization, Other)
  Sender: FDA-Public Use
  Company Number: FR-JNJFOC-20120500921

PATIENT
  Age: 22 None
  Sex: Female

DRUGS (14)
  1. REMICADE [Suspect]
     Indication: CROHN^S DISEASE
     Route: 042
     Dates: start: 20110120
  2. REMICADE [Suspect]
     Indication: CROHN^S DISEASE
     Route: 042
     Dates: start: 20110303
  3. REMICADE [Suspect]
     Indication: CROHN^S DISEASE
     Route: 042
     Dates: start: 20101217
  4. REMICADE [Suspect]
     Indication: CROHN^S DISEASE
     Route: 042
     Dates: start: 20101203
  5. REMICADE [Suspect]
     Indication: CROHN^S DISEASE
     Route: 042
     Dates: start: 20110520
  6. REMICADE [Suspect]
     Indication: CROHN^S DISEASE
     Route: 042
     Dates: start: 20110624
  7. REMICADE [Suspect]
     Indication: CROHN^S DISEASE
     Route: 042
     Dates: start: 20110926
  8. REMICADE [Suspect]
     Indication: CROHN^S DISEASE
     Route: 042
     Dates: start: 20111104
  9. REMICADE [Suspect]
     Indication: CROHN^S DISEASE
     Route: 042
     Dates: start: 20120217
  10. REMICADE [Suspect]
     Indication: CROHN^S DISEASE
     Route: 042
     Dates: start: 20120106, end: 20120106
  11. REMICADE [Suspect]
     Indication: CROHN^S DISEASE
     Route: 042
     Dates: start: 20120330, end: 20120330
  12. IMUREL [Concomitant]
     Route: 065
  13. CORTICOSTEROIDS [Concomitant]
     Route: 065
  14. CETIRIZINE [Concomitant]
     Route: 065

REACTIONS (7)
  - Pain in extremity [Recovered/Resolved]
  - Pain [Recovered/Resolved]
  - Pain in extremity [Recovered/Resolved]
  - Crohn^s disease [Not Recovered/Not Resolved]
  - Pain [Not Recovered/Not Resolved]
  - Musculoskeletal pain [Recovered/Resolved]
  - Systemic lupus erythematosus [Recovered/Resolved]
